FAERS Safety Report 15048402 (Version 1)
Quarter: 2018Q2

REPORT INFORMATION
  Report Type: Spontaneous
  Country: FI (occurrence: ES)
  Receive Date: 20180622
  Receipt Date: 20180622
  Transmission Date: 20180711
  Serious: Yes (Death)
  Sender: FDA-Public Use
  Company Number: ES-TEVA-2018-FI-908859

PATIENT
  Age: 91 Year
  Sex: Female

DRUGS (15)
  1. THYROXIN [Suspect]
     Active Substance: LEVOTHYROXINE
     Indication: HYPOTHYROIDISM
     Dosage: 25 MICROGRAM DAILY;
     Route: 048
     Dates: start: 20180306, end: 20180326
  2. ORMOX [Concomitant]
     Route: 048
     Dates: start: 20000101
  3. MEMANTINE. [Suspect]
     Active Substance: MEMANTINE
     Indication: MEMORY IMPAIRMENT
     Dosage: 10 MILLIGRAM DAILY;
     Route: 048
     Dates: start: 20180308, end: 20180321
  4. ALLONOL [Suspect]
     Active Substance: ALLOPURINOL
     Indication: GOUT
     Dosage: 100 MILLIGRAM DAILY;
     Route: 048
     Dates: start: 20180129, end: 20180326
  5. PARACETAMOL RATIOPHARM [Concomitant]
     Active Substance: ACETAMINOPHEN
     Dosage: 3 GRAM DAILY;
     Route: 065
     Dates: start: 20000101
  6. VENTOLINE EVOHALER [Concomitant]
     Active Substance: ALBUTEROL SULFATE
     Dosage: ,,AS NECESSARY
     Route: 055
     Dates: start: 20170113
  7. NITROGLYCERIN ORION [Concomitant]
     Dosage: ,,AS NECESSARY
     Route: 060
     Dates: start: 20110118
  8. EMCONCOR [Concomitant]
     Active Substance: BISOPROLOL FUMARATE
     Dosage: 2.5 MILLIGRAM DAILY;
     Route: 048
     Dates: start: 20170113
  9. LAXOBERON [Concomitant]
     Active Substance: SODIUM PICOSULFATE
     Dosage: ,,AS NECESSARY
     Route: 048
     Dates: start: 20000101
  10. ZAROXOLYN [Suspect]
     Active Substance: METOLAZONE
     Indication: CARDIAC FAILURE
     Route: 048
     Dates: start: 20180123, end: 20180326
  11. INNOVAIR [Concomitant]
     Active Substance: BECLOMETHASONE DIPROPIONATE\FORMOTEROL
     Dosage: 4 DOSAGE FORMS DAILY;
     Route: 055
     Dates: start: 20170315
  12. KALEORID [Concomitant]
     Active Substance: POTASSIUM CHLORIDE
     Dosage: 3 GRAM DAILY;
     Route: 048
     Dates: start: 20170111
  13. FURESIS [Concomitant]
     Active Substance: FUROSEMIDE
     Route: 048
     Dates: end: 20180319
  14. PRIMASPAN [Suspect]
     Active Substance: ASPIRIN
     Indication: CORONARY ARTERY DISEASE
     Dosage: 100 MILLIGRAM DAILY;
     Route: 047
     Dates: start: 20101018, end: 20180326
  15. VOLTAREN EMULGEL [Concomitant]
     Active Substance: DICLOFENAC DIETHYLAMINE
     Dosage: ,,AS NECESSARY
     Route: 061
     Dates: start: 20110613

REACTIONS (7)
  - Urticaria [Fatal]
  - Cardiac failure [Fatal]
  - Skin reaction [Fatal]
  - Rash [Fatal]
  - Diarrhoea [Fatal]
  - Haematoma [Fatal]
  - Pain [Fatal]

NARRATIVE: CASE EVENT DATE: 20180315
